FAERS Safety Report 18312312 (Version 1)
Quarter: 2020Q3

REPORT INFORMATION
  Report Type: Spontaneous
  Country: US (occurrence: US)
  Receive Date: 20200925
  Receipt Date: 20200925
  Transmission Date: 20201103
  Serious: Yes (Disabling)
  Sender: FDA-Public Use
  Company Number: None

PATIENT
  Age: 29 Year
  Sex: Female
  Weight: 75.6 kg

DRUGS (2)
  1. ETHINYL ESTRADIOL/ETONOGESTREL RING [Suspect]
     Active Substance: ETHINYL ESTRADIOL\ETONOGESTREL
     Indication: PREMENSTRUAL DYSPHORIC DISORDER
     Dosage: ?          QUANTITY:1 RING;OTHER FREQUENCY:ONCE PER MONTH;?
     Route: 067
     Dates: start: 20200612, end: 20200925
  2. WELLBUTRIN [Concomitant]
     Active Substance: BUPROPION HYDROCHLORIDE

REACTIONS (3)
  - Product substitution issue [None]
  - Impaired work ability [None]
  - Abdominal pain [None]

NARRATIVE: CASE EVENT DATE: 20200716
